FAERS Safety Report 9116950 (Version 2)
Quarter: 2013Q2

REPORT INFORMATION
  Report Type: Spontaneous
  Country: US (occurrence: US)
  Receive Date: 20130225
  Receipt Date: 20130410
  Transmission Date: 20140414
  Serious: No
  Sender: FDA-Public Use
  Company Number: US-PFIZER INC-2013067155

PATIENT
  Age: 46 Year
  Sex: Female
  Weight: 61.22 kg

DRUGS (5)
  1. LYRICA [Suspect]
     Indication: NEUROPATHY PERIPHERAL
     Dosage: 150 MG, 3X/DAY
     Route: 048
     Dates: start: 201107
  2. LYRICA [Suspect]
     Indication: FIBROMYALGIA
  3. ZANAFLEX [Concomitant]
     Indication: PAIN
     Dosage: 4 MG, UNK
  4. MORPHINE [Concomitant]
     Dosage: UNK
  5. OXYCODONE [Concomitant]
     Dosage: UNK

REACTIONS (3)
  - Drug ineffective [Unknown]
  - Drug screen negative [Unknown]
  - Pain [Unknown]
